FAERS Safety Report 14923183 (Version 20)
Quarter: 2023Q1

REPORT INFORMATION
  Report Type: Report from Study
  Country: CA (occurrence: None)
  Receive Date: 20180522
  Receipt Date: 20230331
  Transmission Date: 20230418
  Serious: Yes (Hospitalization)
  Sender: FDA-Public Use
  Company Number: CA-ROCHE-1777263

PATIENT
  Age: 56 Year
  Sex: Male
  Weight: 122.9 kg

DRUGS (62)
  1. OCRELIZUMAB [Suspect]
     Active Substance: OCRELIZUMAB
     Indication: Primary progressive multiple sclerosis
     Route: 042
     Dates: start: 20120213, end: 20120213
  2. OCRELIZUMAB [Suspect]
     Active Substance: OCRELIZUMAB
     Route: 042
     Dates: start: 20120227, end: 20120227
  3. OCRELIZUMAB [Suspect]
     Active Substance: OCRELIZUMAB
     Route: 042
     Dates: start: 20120730, end: 20120730
  4. OCRELIZUMAB [Suspect]
     Active Substance: OCRELIZUMAB
     Route: 042
     Dates: start: 20120817, end: 20120817
  5. OCRELIZUMAB [Suspect]
     Active Substance: OCRELIZUMAB
     Route: 042
     Dates: start: 20130114, end: 20130114
  6. OCRELIZUMAB [Suspect]
     Active Substance: OCRELIZUMAB
     Route: 042
     Dates: start: 20130128, end: 20130128
  7. OCRELIZUMAB [Suspect]
     Active Substance: OCRELIZUMAB
     Route: 042
     Dates: start: 20130704, end: 20130704
  8. OCRELIZUMAB [Suspect]
     Active Substance: OCRELIZUMAB
     Route: 042
     Dates: start: 20130718, end: 20130718
  9. OCRELIZUMAB [Suspect]
     Active Substance: OCRELIZUMAB
     Route: 042
     Dates: start: 20131216, end: 20131216
  10. OCRELIZUMAB [Suspect]
     Active Substance: OCRELIZUMAB
     Route: 042
     Dates: start: 20140102, end: 20140102
  11. OCRELIZUMAB [Suspect]
     Active Substance: OCRELIZUMAB
     Route: 042
     Dates: start: 20140602, end: 20140602
  12. OCRELIZUMAB [Suspect]
     Active Substance: OCRELIZUMAB
     Route: 042
     Dates: start: 20140616, end: 20140616
  13. OCRELIZUMAB [Suspect]
     Active Substance: OCRELIZUMAB
     Route: 042
     Dates: start: 20141117, end: 20141117
  14. OCRELIZUMAB [Suspect]
     Active Substance: OCRELIZUMAB
     Route: 042
     Dates: start: 20141201, end: 20141201
  15. OCRELIZUMAB [Suspect]
     Active Substance: OCRELIZUMAB
     Route: 042
     Dates: start: 20150507, end: 20150507
  16. OCRELIZUMAB [Suspect]
     Active Substance: OCRELIZUMAB
     Route: 042
     Dates: start: 20150521, end: 20150521
  17. OCRELIZUMAB [Suspect]
     Active Substance: OCRELIZUMAB
     Route: 042
     Dates: start: 20151019, end: 20151019
  18. OCRELIZUMAB [Suspect]
     Active Substance: OCRELIZUMAB
     Dosage: DAY 1 AND 14 OF EVERY 24 WEEK CYCLE.
     Route: 042
     Dates: start: 20151102, end: 20151102
  19. OCRELIZUMAB [Suspect]
     Active Substance: OCRELIZUMAB
     Indication: Primary progressive multiple sclerosis
     Route: 042
     Dates: start: 20160411, end: 20160411
  20. OCRELIZUMAB [Suspect]
     Active Substance: OCRELIZUMAB
     Route: 042
     Dates: start: 20160425, end: 20160425
  21. OCRELIZUMAB [Suspect]
     Active Substance: OCRELIZUMAB
     Route: 042
     Dates: start: 20160919, end: 20160919
  22. OCRELIZUMAB [Suspect]
     Active Substance: OCRELIZUMAB
     Dosage: SUBSEQUENT DOSES ON 16/MAR/2017 (290 ML), 31/AUG/2017 (559 ML) AND15/FEB/2018 (559 ML) AND 17/JAN/20
     Route: 042
     Dates: start: 20161006, end: 20161006
  23. ALERTEC (CANADA) [Concomitant]
     Indication: Fatigue
     Route: 048
     Dates: start: 20110510, end: 201607
  24. PRAMIPEXOLE [Concomitant]
     Active Substance: PRAMIPEXOLE
     Indication: Muscle spasticity
     Route: 048
     Dates: start: 20081118
  25. BACLOFEN [Concomitant]
     Active Substance: BACLOFEN
     Indication: Muscle spasticity
     Dates: start: 20081118, end: 20150208
  26. BACLOFEN [Concomitant]
     Active Substance: BACLOFEN
     Route: 048
     Dates: start: 20150209
  27. BACLOFEN [Concomitant]
     Active Substance: BACLOFEN
     Route: 048
  28. ACETAMINOPHEN [Concomitant]
     Active Substance: ACETAMINOPHEN
     Indication: Premedication
     Dosage: SAME DOSE ON  27/JAN/2012, 02/FEB/2012, 27/FEB/2012, 30/JUL/2012, 17/AUG/2012, 14/JAN/2013, 28/JAN/2
     Dates: start: 20120213
  29. BENADRYL [Concomitant]
     Active Substance: DIPHENHYDRAMINE HYDROCHLORIDE
     Indication: Premedication
     Dosage: SAME DOSE ON  27/FEB/2012, 30/JUL/2012, 17/AUG/2012, 14/JAN/2013, 28/JAN/2013, 04/JUL/2013, 18/JUL/2
     Dates: start: 20120213
  30. METHYLPREDNISOLONE [Concomitant]
     Active Substance: METHYLPREDNISOLONE
     Indication: Premedication
     Dosage: SAME DOSE ON  27/FEB/2012, 30/JUL/2012, 17/AUG/2012, 14/JAN/2013, 28/JAN/2013, 04/JUL/2013, 18/JUL/2
     Dates: start: 20120213
  31. INFLUENZA VIRUS VACCINE [Concomitant]
     Active Substance: INFLUENZA VIRUS VACCINE
     Indication: Antiviral prophylaxis
     Dates: start: 20111101, end: 20111101
  32. INFLUENZA VIRUS VACCINE [Concomitant]
     Active Substance: INFLUENZA VIRUS VACCINE
     Dates: start: 20121029, end: 20121029
  33. INFLUENZA VIRUS VACCINE [Concomitant]
     Active Substance: INFLUENZA VIRUS VACCINE
     Dates: start: 201511, end: 201511
  34. INFLUENZA VIRUS VACCINE [Concomitant]
     Active Substance: INFLUENZA VIRUS VACCINE
     Dates: start: 20171101, end: 20171101
  35. INFLUENZA VIRUS VACCINE [Concomitant]
     Active Substance: INFLUENZA VIRUS VACCINE
     Dates: start: 20221102, end: 20221102
  36. TYLENOL [Concomitant]
     Active Substance: ACETAMINOPHEN
     Indication: Nasopharyngitis
     Dates: start: 20140726, end: 20140727
  37. TYLENOL [Concomitant]
     Active Substance: ACETAMINOPHEN
     Indication: Pyrexia
     Dates: start: 20140802, end: 20140809
  38. TYLENOL [Concomitant]
     Active Substance: ACETAMINOPHEN
     Dates: start: 20180310, end: 20180417
  39. BOTOX [Concomitant]
     Active Substance: ONABOTULINUMTOXINA
     Indication: Muscle spasticity
     Dates: start: 20160919, end: 20160919
  40. BOTOX [Concomitant]
     Active Substance: ONABOTULINUMTOXINA
     Dates: start: 20161212, end: 20161212
  41. BOTOX [Concomitant]
     Active Substance: ONABOTULINUMTOXINA
     Dates: start: 20170330, end: 20170330
  42. BIOTIN [Concomitant]
     Active Substance: BIOTIN
     Dates: start: 20170330, end: 20170930
  43. METRONIDAZOLE [Concomitant]
     Active Substance: METRONIDAZOLE
     Dates: start: 20180629
  44. ZOFRAN [Concomitant]
     Active Substance: ONDANSETRON HYDROCHLORIDE
     Indication: Nausea
     Dates: start: 20180504, end: 20180504
  45. MAGNESIUM SULFATE [Concomitant]
     Active Substance: MAGNESIUM SULFATE
     Indication: Hypomagnesaemia
     Dates: start: 20180506, end: 20180506
  46. GRAVOL [Concomitant]
     Active Substance: DIMENHYDRINATE
     Indication: Nausea
     Dates: start: 20180507, end: 20180507
  47. CEFAZOLIN [Concomitant]
     Active Substance: CEFAZOLIN
     Indication: Cellulitis
     Dates: start: 20180510, end: 20180518
  48. CEPHALEXIN [Concomitant]
     Active Substance: CEPHALEXIN
     Indication: Cellulitis
     Dates: start: 20180519, end: 20180601
  49. CEPHALEXIN [Concomitant]
     Active Substance: CEPHALEXIN
     Dates: start: 20220106, end: 20220112
  50. ATIVAN [Concomitant]
     Active Substance: LORAZEPAM
     Indication: Anxiety
     Route: 048
     Dates: start: 20201116
  51. ATIVAN [Concomitant]
     Active Substance: LORAZEPAM
     Indication: Magnetic resonance imaging
  52. ATORVASTATIN [Concomitant]
     Active Substance: ATORVASTATIN
     Indication: Hypertension
     Route: 048
     Dates: start: 202007
  53. RAMIPRIL [Concomitant]
     Active Substance: RAMIPRIL
     Indication: Hypertension
     Dates: start: 20200701, end: 20221220
  54. RAMIPRIL [Concomitant]
     Active Substance: RAMIPRIL
     Route: 048
     Dates: start: 20221221
  55. CEFPROZIL [Concomitant]
     Active Substance: CEFPROZIL
     Indication: Prophylaxis
     Route: 048
     Dates: start: 20220721
  56. MODERNA COVID-19 VACCINE [Concomitant]
     Active Substance: ELASOMERAN
     Dosage: SUBSEQUENT DOSES: 19/JUL/2021 (0.3 ML), 29/SEP/2021 (0.30 ML), 16/JAN/2022 (0.2 ML), 14/SEP/2022 (0.
     Dates: start: 20210609
  57. VITAMIN B12 [Concomitant]
     Active Substance: CYANOCOBALAMIN
     Indication: Vitamin B12 deficiency
     Route: 048
     Dates: start: 20221216
  58. CHOLECALCIFEROL [Concomitant]
     Active Substance: CHOLECALCIFEROL
     Indication: Vitamin supplementation
     Route: 048
     Dates: start: 20070101
  59. PRAMIPEXOLE [Concomitant]
     Active Substance: PRAMIPEXOLE
     Indication: Muscle spasticity
     Route: 048
     Dates: start: 20081118
  60. PFIZER-BIONTECH COVID-19 VACCINE [Concomitant]
     Active Substance: TOZINAMERAN
     Dosage: 19/JUL/2021
     Dates: start: 20210609
  61. ACIDOPHILUS [Concomitant]
     Active Substance: LACTOBACILLUS ACIDOPHILUS
     Route: 048
     Dates: start: 201809
  62. PRAMIPEXOLE [Concomitant]
     Active Substance: PRAMIPEXOLE
     Route: 048
     Dates: start: 20081118

REACTIONS (4)
  - Sepsis [Recovered/Resolved]
  - Gastrointestinal infection [Recovered/Resolved]
  - COVID-19 pneumonia [Recovered/Resolved]
  - Cellulitis [Recovered/Resolved]

NARRATIVE: CASE EVENT DATE: 20160609
